FAERS Safety Report 15009841 (Version 1)
Quarter: 2018Q2

REPORT INFORMATION
  Report Type: Spontaneous
  Country: US (occurrence: US)
  Receive Date: 20180521
  Receipt Date: 20180521
  Transmission Date: 20180711
  Serious: No
  Sender: FDA-Public Use
  Company Number: None

PATIENT
  Age: 34 Year
  Sex: Female

DRUGS (12)
  1. NICOTINE. [Concomitant]
     Active Substance: NICOTINE
  2. AMLODIPINE [Concomitant]
     Active Substance: AMLODIPINE BESYLATE
  3. INSULIN GLARGINE [Suspect]
     Active Substance: INSULIN GLARGINE
     Indication: HYPERGLYCAEMIA
     Dosage: ?          OTHER DOSE:35 UNITS;?
     Route: 058
     Dates: start: 20170717, end: 20170717
  4. ONDANSETRON [Concomitant]
     Active Substance: ONDANSETRON
  5. ACETAMINOPHEN. [Concomitant]
     Active Substance: ACETAMINOPHEN
  6. DIPHENHYDRAMINE. [Concomitant]
     Active Substance: DIPHENHYDRAMINE
  7. MAGNESIUM SULFATE. [Concomitant]
     Active Substance: MAGNESIUM SULFATE
  8. DEXTROSE. [Concomitant]
     Active Substance: DEXTROSE
  9. TRAZODONE [Concomitant]
     Active Substance: TRAZODONE HYDROCHLORIDE
  10. INSULIN ASPART [Concomitant]
     Active Substance: INSULIN ASPART
  11. LISINOPRIL. [Concomitant]
     Active Substance: LISINOPRIL
  12. POTASSIUM CHLORIDE. [Concomitant]
     Active Substance: POTASSIUM CHLORIDE

REACTIONS (3)
  - Blood glucose increased [None]
  - Hypoglycaemia [None]
  - Diabetic ketoacidosis [None]

NARRATIVE: CASE EVENT DATE: 20170717
